FAERS Safety Report 5514481-3 (Version None)
Quarter: 2007Q4

REPORT INFORMATION
  Report Type: 
  Country: None (occurrence: None)
  Receive Date: 20071030
  Receipt Date: 20070709
  Transmission Date: 20080405
  Serious: Yes (Hospitalization, Other)
  Sender: FDA-Public Use
  Company Number: HQWYE095914JUL04

PATIENT
  Age: 60 Year
  Sex: Female
  Weight: 76.73 kg

DRUGS (1)
  1. PREMARIN [Suspect]
     Dates: start: 19720101, end: 20011201

REACTIONS (1)
  - BREAST CANCER [None]
